FAERS Safety Report 9160463 (Version 1)
Quarter: 2013Q1

REPORT INFORMATION
  Report Type: Spontaneous
  Country: FR (occurrence: None)
  Receive Date: 20130215
  Receipt Date: 20130215
  Transmission Date: 20140127
  Serious: Yes (Hospitalization)
  Sender: FDA-Public Use
  Company Number: SYM-2013-00473

PATIENT
  Age: 62 Year
  Sex: Female

DRUGS (8)
  1. RENITEC (ENALAPRIL) [Suspect]
     Indication: HYPERTENSION
     Route: 048
  2. LEXOMIL (BROMAZEPAM) (UNKNOWN) (BROMAZEPAM) [Concomitant]
  3. FOSAMAX (ALENDRONATE SODIUM) (UNKNOWN) (ALENDRONATE SODIUM) [Concomitant]
  4. TENSTATEN (CICLETANINE HYDROCHLORIDE) (UNKNOWN) (CICLETANINE HYDROCHLORIDE) [Concomitant]
  5. TAHOR (ATORVASTATIN CALCIUM) (TABLETS) (ATORVASTATIN CALCIUM) [Concomitant]
  6. (CICLOSPORIN) (UNKNOWN) (CICLOSPORIN) [Concomitant]
  7. CELLCEPT (MYCOPHENOLATE MOFETIL) (TABLETS) (MYCOPHENOLATE MOFETIL) [Concomitant]
  8. SKENAN (MORPHINE SULFATE) (UNKNOWN) (MORPHINE SULFATE) [Concomitant]

REACTIONS (5)
  - Angioedema [None]
  - Dyspnoea [None]
  - Dysphagia [None]
  - Eyelid oedema [None]
  - Macroglossia [None]
